FAERS Safety Report 4943707-X (Version None)
Quarter: 2006Q1

REPORT INFORMATION
  Report Type: 
  Country: None (occurrence: None)
  Receive Date: 20060310
  Receipt Date: 20060227
  Transmission Date: 20060701
  Serious: Yes (Hospitalization)
  Sender: FDA-Public Use
  Company Number: A-JP2006-11709

PATIENT
  Age: 63 Year
  Sex: Female

DRUGS (5)
  1. TRACLEER [Suspect]
     Indication: PULMONARY HYPERTENSION
     Dosage: 62.5 MG, BID, ORAL
     Route: 048
     Dates: start: 20051213, end: 20060117
  2. BERAPROST SODIUM [Concomitant]
  3. WARFARIN POTASSIUM [Concomitant]
  4. OXYGEN [Concomitant]
  5. BIFIDOBACTERIUM [Concomitant]

REACTIONS (3)
  - ALANINE AMINOTRANSFERASE INCREASED [None]
  - ASPARTATE AMINOTRANSFERASE INCREASED [None]
  - DIARRHOEA [None]
